FAERS Safety Report 8116919-4 (Version None)
Quarter: 2012Q1

REPORT INFORMATION
  Report Type: 
  Country: None (occurrence: None)
  Receive Date: 20120206
  Receipt Date: 20120127
  Transmission Date: 20120608
  Serious: Yes (Hospitalization)
  Sender: FDA-Public Use
  Company Number: PL-ABBOTT-12P-129-0894651-00

PATIENT
  Age: 24 Year
  Sex: Female

DRUGS (8)
  1. ADALIMUMAB [Suspect]
     Indication: PSORIASIS
     Route: 058
     Dates: start: 20090201
  2. SULFASALAZINE [Concomitant]
     Indication: PSORIASIS
  3. ETANERCEPT [Concomitant]
     Indication: PSORIASIS
     Route: 058
     Dates: start: 20080401
  4. INFLIXIMAB [Concomitant]
     Indication: PSORIASIS
     Dosage: 400 MG DAILY DOSE
     Route: 042
  5. ACITRETIN [Concomitant]
     Indication: PSORIASIS
  6. CYCLOSPORINE [Suspect]
     Indication: PSORIASIS
  7. METHOTREXATE [Concomitant]
     Indication: PSORIASIS
  8. ETANERCEPT [Concomitant]
     Route: 058

REACTIONS (7)
  - URINARY TRACT INFECTION [None]
  - LEUKOPENIA [None]
  - OFF LABEL USE [None]
  - PYREXIA [None]
  - DRUG INEFFECTIVE [None]
  - ASTHENIA [None]
  - GASTROINTESTINAL HAEMORRHAGE [None]
